FAERS Safety Report 16195683 (Version 1)
Quarter: 2019Q2

REPORT INFORMATION
  Report Type: Spontaneous
  Country: US (occurrence: US)
  Receive Date: 20190415
  Receipt Date: 20190415
  Transmission Date: 20190711
  Serious: No
  Sender: FDA-Public Use
  Company Number: US-SAREPTA THERAPEUTICS, INC-SRP-000209-2018

PATIENT
  Age: 17 Year
  Sex: Male
  Weight: 80.9 kg

DRUGS (1)
  1. EXONDYS 51 [Suspect]
     Active Substance: ETEPLIRSEN
     Indication: PRODUCT USED FOR UNKNOWN INDICATION
     Dosage: 2500 MG, WEEKLY VIA PERIPHERAL ROUTE
     Route: 050

REACTIONS (3)
  - Hyperventilation [Unknown]
  - Flushing [Unknown]
  - Panic attack [Unknown]

NARRATIVE: CASE EVENT DATE: 20181213
